FAERS Safety Report 22344018 (Version 1)
Quarter: 2023Q2

REPORT INFORMATION
  Report Type: Spontaneous
  Country: US (occurrence: None)
  Receive Date: 20230518
  Receipt Date: 20230518
  Transmission Date: 20230722
  Serious: Yes (Other)
  Sender: FDA-Public Use
  Company Number: None

PATIENT
  Age: 63 Year
  Sex: Male
  Weight: 113 kg

DRUGS (6)
  1. LIDOCAINE\PRILOCAINE [Suspect]
     Active Substance: LIDOCAINE\PRILOCAINE
     Indication: Fistula
     Dosage: 1 1 DAIL TROPICA
     Route: 061
     Dates: start: 20230407, end: 20230516
  2. Calatril [Concomitant]
  3. Omeprozle [Concomitant]
  4. Dailyvite [Concomitant]
  5. Lexpro [Concomitant]
  6. VITAMIN D [Concomitant]
     Active Substance: VITAMIN D NOS

REACTIONS (3)
  - Application site erythema [None]
  - Skin discolouration [None]
  - Product substitution issue [None]

NARRATIVE: CASE EVENT DATE: 20230407
